FAERS Safety Report 7132618-X (Version None)
Quarter: 2010Q4

REPORT INFORMATION
  Report Type: 
  Country: None (occurrence: None)
  Receive Date: 20101202
  Receipt Date: 20101123
  Transmission Date: 20110411
  Serious: Yes (Other)
  Sender: FDA-Public Use
  Company Number: US-JNJFOC-20101108120

PATIENT
  Sex: Male

DRUGS (4)
  1. NUCYNTA [Suspect]
     Indication: ANALGESIC THERAPY
     Route: 048
  2. WELLBUTRIN [Suspect]
     Indication: PRODUCT USED FOR UNKNOWN INDICATION
     Route: 048
  3. PROZAC [Suspect]
     Indication: PRODUCT USED FOR UNKNOWN INDICATION
     Route: 048
  4. ZANAFLEX [Suspect]
     Indication: MUSCLE RELAXANT THERAPY
     Route: 048

REACTIONS (5)
  - AGGRESSION [None]
  - CHILLS [None]
  - FEELING ABNORMAL [None]
  - HYPERTENSION [None]
  - SEROTONIN SYNDROME [None]
